FAERS Safety Report 17918194 (Version 1)
Quarter: 2020Q2

REPORT INFORMATION
  Report Type: Spontaneous
  Country: CA (occurrence: CA)
  Receive Date: 20200619
  Receipt Date: 20200619
  Transmission Date: 20200714
  Serious: Yes (Hospitalization, Other)
  Sender: FDA-Public Use
  Company Number: CA-CANTON LABORATORIES, LLC-2086289

PATIENT
  Age: 69 Year
  Sex: Female

DRUGS (14)
  1. NAPROSYN [Suspect]
     Active Substance: NAPROXEN
     Indication: RHEUMATOID ARTHRITIS
     Route: 065
  2. CORTISONE ACETATE. [Suspect]
     Active Substance: CORTISONE ACETATE
     Route: 048
  3. SIMPONI [Suspect]
     Active Substance: GOLIMUMAB
     Route: 058
  4. XELJANZ [Suspect]
     Active Substance: TOFACITINIB CITRATE
     Route: 065
  5. DILTIAZEM. [Suspect]
     Active Substance: DILTIAZEM
     Route: 065
  6. PREDNISONE. [Suspect]
     Active Substance: PREDNISONE
  7. CARDIZEM CD [Suspect]
     Active Substance: DILTIAZEM HYDROCHLORIDE
     Route: 048
  8. RITUXAN [Suspect]
     Active Substance: RITUXIMAB
     Route: 042
  9. ENBREL [Suspect]
     Active Substance: ETANERCEPT
     Route: 058
  10. METHOTREXATE SODIUM. [Suspect]
     Active Substance: METHOTREXATE SODIUM
     Route: 048
  11. ORENCIA [Suspect]
     Active Substance: ABATACEPT
     Route: 042
  12. DESOXIMETASONE. [Suspect]
     Active Substance: DESOXIMETASONE
     Route: 048
  13. CELEBREX [Suspect]
     Active Substance: CELECOXIB
     Route: 065
  14. CIMZIA [Suspect]
     Active Substance: CERTOLIZUMAB PEGOL
     Route: 058

REACTIONS (19)
  - Paraesthesia [Not Recovered/Not Resolved]
  - Cough [Not Recovered/Not Resolved]
  - Drug ineffective [Unknown]
  - Nephrolithiasis [Unknown]
  - Atrial fibrillation [Not Recovered/Not Resolved]
  - Kidney infection [Not Recovered/Not Resolved]
  - Pain in extremity [Not Recovered/Not Resolved]
  - Nerve injury [Unknown]
  - Pain [Not Recovered/Not Resolved]
  - Contraindicated product administered [Unknown]
  - Respiratory tract congestion [Unknown]
  - Foot operation [Not Recovered/Not Resolved]
  - Pulmonary congestion [Not Recovered/Not Resolved]
  - Hypoaesthesia [Not Recovered/Not Resolved]
  - Infection [Unknown]
  - Impaired healing [Not Recovered/Not Resolved]
  - Lower respiratory tract congestion [Unknown]
  - Foot deformity [Recovering/Resolving]
  - Swelling [Not Recovered/Not Resolved]
